FAERS Safety Report 5578522-X (Version None)
Quarter: 2007Q4

REPORT INFORMATION
  Report Type: 
  Country: None (occurrence: None)
  Receive Date: 20071227
  Receipt Date: 20060511
  Transmission Date: 20080405
  Serious: Yes (Other)
  Sender: FDA-Public Use
  Company Number: 2006VX001652

PATIENT
  Age: 44 Year
  Sex: Female
  Weight: 98 kg

DRUGS (6)
  1. CESAMET [Suspect]
     Dosage: 0.5 MG; FIRST DOSE; PO
     Route: 048
  2. CI PRALEX [Concomitant]
  3. TRAZODONE HCL [Concomitant]
  4. NASONEX [Concomitant]
  5. PRAVASTATIN SODIUM [Concomitant]
  6. RANITIDINE [Concomitant]

REACTIONS (6)
  - ASTHENIA [None]
  - BURNING SENSATION [None]
  - CONVULSION [None]
  - LOSS OF CONSCIOUSNESS [None]
  - MYOCLONUS [None]
  - TREMOR [None]
